FAERS Safety Report 7082667-5 (Version None)
Quarter: 2010Q4

REPORT INFORMATION
  Report Type: 
  Country: None (occurrence: None)
  Receive Date: 20101001
  Receipt Date: 20100820
  Transmission Date: 20110411
  Serious: No
  Sender: FDA-Public Use
  Company Number: 1000015848

PATIENT
  Age: 40 Year
  Sex: Female

DRUGS (1)
  1. BYSTOLIC [Suspect]
     Dosage: 10 MG (10 MG, 1 IN 1 D)

REACTIONS (1)
  - ARTHRALGIA [None]
